FAERS Safety Report 5407870-9 (Version None)
Quarter: 2007Q3

REPORT INFORMATION
  Report Type: 
  Country: None (occurrence: None)
  Receive Date: 20070713
  Receipt Date: 20070419
  Transmission Date: 20080115
  Serious: No
  Sender: FDA-Public Use
  Company Number: 2007SP001623

PATIENT
  Age: 44 Year
  Sex: Male
  Weight: 88.4514 kg

DRUGS (6)
  1. LUNESTA [Suspect]
     Indication: RAPID EYE MOVEMENTS SLEEP ABNORMAL
     Dosage: 3 MG;ORAL
     Route: 048
     Dates: start: 20050101, end: 20070327
  2. LUNESTA [Suspect]
     Indication: RAPID EYE MOVEMENTS SLEEP ABNORMAL
     Dosage: 3 MG;ORAL
     Route: 048
     Dates: start: 20070331, end: 20070407
  3. LUNESTA [Suspect]
     Indication: RAPID EYE MOVEMENTS SLEEP ABNORMAL
     Dosage: 3 MG;ORAL
     Route: 048
     Dates: start: 20070418
  4. ROZEREM [Suspect]
     Indication: RAPID EYE MOVEMENTS SLEEP ABNORMAL
     Dosage: ORAL
     Route: 048
     Dates: start: 20070301, end: 20070401
  5. NEXIUM [Concomitant]
  6. CRESTOR [Concomitant]

REACTIONS (8)
  - ABNORMAL DREAMS [None]
  - AMNESIA [None]
  - COGNITIVE DISORDER [None]
  - DRUG EFFECT DECREASED [None]
  - DRUG INEFFECTIVE [None]
  - DYSGEUSIA [None]
  - POOR QUALITY SLEEP [None]
  - REBOUND EFFECT [None]
